FAERS Safety Report 8600583-1 (Version None)
Quarter: 2012Q3

REPORT INFORMATION
  Report Type: 
  Country: None (occurrence: None)
  Receive Date: 20120817
  Receipt Date: 20120809
  Transmission Date: 20120928
  Serious: Yes (Other)
  Sender: FDA-Public Use
  Company Number: US-BAYER-2012-082499

PATIENT
  Age: 18 Year
  Sex: Female

DRUGS (5)
  1. SINGULAIR [Concomitant]
     Dosage: UNK
     Dates: start: 20071016
  2. ELIDEL [Concomitant]
     Dosage: UNK
     Dates: start: 20071016
  3. BACTROBAN [Concomitant]
     Dosage: UNK
     Dates: start: 20071016
  4. YASMIN [Suspect]
     Dosage: UNK
  5. FLONASE [Concomitant]
     Dosage: UNK
     Dates: start: 20071016

REACTIONS (1)
  - DEEP VEIN THROMBOSIS [None]
